FAERS Safety Report 10311558 (Version 1)
Quarter: 2014Q3

REPORT INFORMATION
  Report Type: Spontaneous
  Country: CA (occurrence: CA)
  Receive Date: 20140717
  Receipt Date: 20140717
  Transmission Date: 20150326
  Serious: Yes (Other)
  Sender: FDA-Public Use
  Company Number: CA-GLAXOSMITHKLINE-A1081440A

PATIENT
  Age: 56 Year
  Sex: Male
  Weight: 104 kg

DRUGS (7)
  1. HORSE CHESTNUT SEED EXTRACT [Concomitant]
  2. WELLBUTRIN XL [Suspect]
     Active Substance: BUPROPION HYDROCHLORIDE
     Indication: PRODUCT USED FOR UNKNOWN INDICATION
     Dosage: 300MG PER DAY
     Route: 048
  3. QUETIAPINE FUMARATE. [Suspect]
     Active Substance: QUETIAPINE FUMARATE
     Indication: PRODUCT USED FOR UNKNOWN INDICATION
     Dosage: 200MG PER DAY
     Route: 048
  4. ECHINACEA PURPUREA [Concomitant]
     Active Substance: ECHINACEA PURPUREA
  5. MILK THISTLE [Concomitant]
     Active Substance: MILK THISTLE
  6. CLONAZEPAM. [Suspect]
     Active Substance: CLONAZEPAM
     Indication: PRODUCT USED FOR UNKNOWN INDICATION
     Dosage: 1MG PER DAY
     Route: 048
  7. ESCITALOPRAM OXALATE. [Suspect]
     Active Substance: ESCITALOPRAM OXALATE
     Indication: PRODUCT USED FOR UNKNOWN INDICATION
     Dosage: 10MG PER DAY
     Route: 048

REACTIONS (14)
  - Increased appetite [Unknown]
  - Nausea [Unknown]
  - Tinnitus [Unknown]
  - Weight increased [Unknown]
  - Dry mouth [Unknown]
  - Muscular weakness [Unknown]
  - Somnolence [Unknown]
  - Constipation [Unknown]
  - Depression [Unknown]
  - Dizziness [Unknown]
  - Suicidal ideation [Unknown]
  - Erection increased [Unknown]
  - Fatigue [Unknown]
  - Tremor [Unknown]
